FAERS Safety Report 7066594-5 (Version None)
Quarter: 2010Q4

REPORT INFORMATION
  Report Type: 
  Country: None (occurrence: None)
  Receive Date: 20101027
  Receipt Date: 20100609
  Transmission Date: 20110411
  Serious: No
  Sender: FDA-Public Use
  Company Number: US-WYE-H15827210

PATIENT
  Sex: Female
  Weight: 61.29 kg

DRUGS (3)
  1. PREMPRO [Suspect]
     Indication: HORMONE REPLACEMENT THERAPY
     Dosage: .625/2.5 MG DAILY
     Route: 048
     Dates: start: 20091201
  2. SYNTHROID [Interacting]
     Indication: HYPOTHYROIDISM
     Route: 065
     Dates: start: 20050101
  3. SYNTHROID [Interacting]
     Route: 065

REACTIONS (4)
  - CONDITION AGGRAVATED [None]
  - DRUG INTERACTION [None]
  - HYPOTHYROIDISM [None]
  - MALAISE [None]
